FAERS Safety Report 4645477-1 (Version None)
Quarter: 2005Q2

REPORT INFORMATION
  Report Type: 
  Country: None (occurrence: None)
  Receive Date: 20050331
  Receipt Date: 20050128
  Transmission Date: 20051028
  Serious: Yes (Hospitalization)
  Sender: FDA-Public Use
  Company Number: 05P-163-0288890-00

PATIENT
  Age: 45 Year
  Sex: Female
  Weight: 77.5651 kg

DRUGS (4)
  1. HUMIRA [Suspect]
     Indication: RHEUMATOID ARTHRITIS
     Dosage: 40 MG, 1 IN 2 WK, SUBCUTANEOUS
     Route: 058
     Dates: start: 20040101
  2. FOLIC ACID [Concomitant]
  3. CITICOLINE SODIUM [Concomitant]
  4. PAROXETINE HYDROCHLORIDE [Concomitant]

REACTIONS (5)
  - APPENDICITIS [None]
  - CHOLELITHIASIS [None]
  - INJECTION SITE IRRITATION [None]
  - MEDICATION ERROR [None]
  - WOUND INFECTION [None]
